FAERS Safety Report 7426671-3 (Version None)
Quarter: 2011Q2

REPORT INFORMATION
  Report Type: 
  Country: None (occurrence: None)
  Receive Date: 20110420
  Receipt Date: 20110406
  Transmission Date: 20111010
  Serious: Yes (Hospitalization)
  Sender: FDA-Public Use
  Company Number: DE-BAYER-2010-003122

PATIENT
  Age: 78 Year
  Sex: Male
  Weight: 79 kg

DRUGS (3)
  1. NUMALIN [Concomitant]
     Dosage: 3 TIMES A DAY
     Dates: start: 20100501
  2. PMOS WITH SORAFENIB (INSIGHT) [Suspect]
     Indication: HEPATIC NEOPLASM MALIGNANT
     Dosage: UNK
     Dates: end: 20100501
  3. MCP [Concomitant]
     Dosage: 2 DROPS
     Route: 048

REACTIONS (2)
  - FATIGUE [None]
  - HEPATIC ENCEPHALOPATHY [None]
